FAERS Safety Report 5598687-3 (Version None)
Quarter: 2007Q4

REPORT INFORMATION
  Report Type: 
  Country: None (occurrence: None)
  Receive Date: 20071226
  Receipt Date: 20071026
  Transmission Date: 20080405
  Serious: No
  Sender: FDA-Public Use
  Company Number: 2007PV033639

PATIENT
  Sex: Female

DRUGS (2)
  1. SYMLIN [Suspect]
     Indication: TYPE 1 DIABETES MELLITUS
     Dosage: 15 MCG, TID, SC
     Route: 058
     Dates: start: 20070801
  2. INSULIN [Concomitant]

REACTIONS (4)
  - CRYING [None]
  - EMOTIONAL DISTRESS [None]
  - MOOD ALTERED [None]
  - STRESS [None]
